FAERS Safety Report 5130013-6 (Version None)
Quarter: 2006Q4

REPORT INFORMATION
  Report Type: 
  Country: None (occurrence: None)
  Receive Date: 20061013
  Receipt Date: 20061002
  Transmission Date: 20070319
  Serious: Yes (Hospitalization)
  Sender: FDA-Public Use
  Company Number: 2005155871

PATIENT
  Age: 71 Year
  Sex: Male

DRUGS (5)
  1. LINEZOLID [Suspect]
     Dosage: ORAL
     Route: 048
     Dates: start: 20051005, end: 20051104
  2. ALDACTAZINE (ALTIZIDE, SPIRONOLACTONE) [Concomitant]
  3. RAMIPRIL [Concomitant]
  4. PRAVASTATIN [Concomitant]
  5. COMBIVENT [Concomitant]

REACTIONS (2)
  - GASTRITIS HAEMORRHAGIC [None]
  - HAEMOGLOBIN DECREASED [None]
